FAERS Safety Report 17289553 (Version 5)
Quarter: 2020Q1

REPORT INFORMATION
  Report Type: Report from Study
  Country: FR (occurrence: FR)
  Receive Date: 20200120
  Receipt Date: 20200316
  Transmission Date: 20200409
  Serious: Yes (Death, Hospitalization, Other)
  Sender: FDA-Public Use
  Company Number: FR-MYLANLABS-2020M1004461

PATIENT
  Age: 83 Year
  Sex: Female
  Weight: 80 kg

DRUGS (14)
  1. TINZAPARIN [Concomitant]
     Active Substance: TINZAPARIN
     Indication: ANTICOAGULANT THERAPY
     Dosage: UNK, QD
     Route: 058
  2. BISOCE [Concomitant]
     Active Substance: BISOPROLOL
     Indication: CARDIAC FAILURE
     Dosage: 2.5 MILLIGRAM, QD
     Route: 048
  3. VALACICLOVIR [Concomitant]
     Active Substance: VALACYCLOVIR HYDROCHLORIDE
     Indication: ANTIVIRAL TREATMENT
     Dosage: 1 GRAM, QD
     Route: 048
     Dates: start: 20191003
  4. LENALIDOMIDE [Suspect]
     Active Substance: LENALIDOMIDE
     Indication: PLASMA CELL MYELOMA
     Dosage: UNK
     Route: 065
     Dates: start: 20181130, end: 20190718
  5. POMALIDOMIDE [Concomitant]
     Active Substance: POMALIDOMIDE
     Indication: PLASMA CELL MYELOMA
     Dosage: UNK
     Route: 065
  6. CACIT VITAMINE D3 [Concomitant]
     Active Substance: CALCIUM CARBONATE\CHOLECALCIFEROL
     Indication: VITAMIN D DEFICIENCY
     Dosage: 1 GRAM, QD
     Route: 048
  7. DEXAMETHASONE. [Suspect]
     Active Substance: DEXAMETHASONE
     Dosage: 10 MILLIGRAM, QW
     Route: 065
     Dates: start: 20190807
  8. TRINITRIN [Concomitant]
     Active Substance: NITROGLYCERIN
     Indication: ANGINA PECTORIS
     Dosage: 15 MILLIGRAM, QD
     Route: 058
  9. DEXAMETHASONE. [Suspect]
     Active Substance: DEXAMETHASONE
     Indication: PLASMA CELL MYELOMA
     Dosage: UNK
     Route: 065
     Dates: start: 20181130
  10. IXAZOMIB [Suspect]
     Active Substance: IXAZOMIB
     Indication: PLASMA CELL MYELOMA
     Dosage: 3 MILLIGRAM
     Route: 048
     Dates: start: 20181130
  11. MIRTAZAPINE. [Concomitant]
     Active Substance: MIRTAZAPINE
     Indication: ANTIDEPRESSANT THERAPY
     Dosage: 15 MILLIGRAM, QD
     Route: 048
  12. ALPRAZOLAM. [Concomitant]
     Active Substance: ALPRAZOLAM
     Indication: ANXIOLYTIC THERAPY
     Dosage: 0.5 MILLIGRAM, QD
     Route: 048
  13. IXAZOMIB [Suspect]
     Active Substance: IXAZOMIB
     Dosage: 2 MILLIGRAM
     Route: 048
     Dates: start: 20181228, end: 20190718
  14. TRINITRIN [Concomitant]
     Active Substance: NITROGLYCERIN
     Dosage: 5 MILLIGRAM, QD
     Route: 058

REACTIONS (10)
  - Dyspnoea [Unknown]
  - Haematotoxicity [Unknown]
  - Plasma cell myeloma [Fatal]
  - Loss of consciousness [Unknown]
  - Acute coronary syndrome [Unknown]
  - White matter lesion [Unknown]
  - Escherichia bacteraemia [Recovered/Resolved]
  - Anxiety [Unknown]
  - General physical health deterioration [Fatal]
  - Malaise [Not Recovered/Not Resolved]

NARRATIVE: CASE EVENT DATE: 20191003
